FAERS Safety Report 9056293 (Version 2)
Quarter: 2014Q2

REPORT INFORMATION
  Report Type: Report from Study
  Country: JP (occurrence: JP)
  Receive Date: 20130205
  Receipt Date: 20140505
  Transmission Date: 20141212
  Serious: Yes (Other)
  Sender: FDA-Public Use
  Company Number: JP-VERTEX PHARMACEUTICALS INC.-AE-2012-007853

PATIENT
  Age: 64 Year
  Sex: Female

DRUGS (12)
  1. VX-950 (TELAPREVIR) [Suspect]
     Indication: CHRONIC HEPATITIS C
     Dosage: 2250 MG, QD
     Route: 048
     Dates: start: 20120216, end: 20120328
  2. VX-950 (TELAPREVIR) [Suspect]
     Dosage: 1500 MG, QD
     Route: 048
     Dates: start: 20120329, end: 20120404
  3. VX-950 (TELAPREVIR) [Suspect]
     Dosage: 750 MG, QD
     Route: 048
     Dates: start: 20120405, end: 20120509
  4. RIBAVIRIN [Suspect]
     Indication: CHRONIC HEPATITIS C
     Dosage: 800 MG, QD
     Route: 048
     Dates: start: 20120216, end: 20120307
  5. RIBAVIRIN [Suspect]
     Dosage: 600 MG, QD
     Route: 048
     Dates: start: 20120308, end: 20120314
  6. RIBAVIRIN [Suspect]
     Dosage: 400 MG, QD
     Route: 048
     Dates: start: 20120315, end: 20120321
  7. RIBAVIRIN [Suspect]
     Dosage: 200 MG, QD
     Route: 048
     Dates: start: 20120322, end: 20120801
  8. PEGINTRON [Suspect]
     Indication: CHRONIC HEPATITIS C
     Dosage: 1.5 ?G/KG, QW
     Route: 058
     Dates: start: 20120216, end: 20120726
  9. ARTIST [Concomitant]
     Dosage: 5 MG, QD
     Route: 048
  10. URSO [Concomitant]
     Dosage: 600 MG, QD
     Route: 048
     Dates: end: 20120418
  11. ZYLORIC [Concomitant]
     Dosage: 200 MG, QD
     Route: 048
  12. ALLELOCK [Concomitant]
     Dosage: 10 MG, QD
     Route: 048

REACTIONS (1)
  - Haemoglobin decreased [Recovered/Resolved]
